FAERS Safety Report 19772404 (Version 2)
Quarter: 2021Q3

REPORT INFORMATION
  Report Type: Spontaneous
  Country: CZ (occurrence: CZ)
  Receive Date: 20210831
  Receipt Date: 20210831
  Transmission Date: 20211014
  Serious: Yes (Death)
  Sender: FDA-Public Use
  Company Number: CZ-BAUSCH-BL-2021-028716

PATIENT
  Age: 91 Year
  Sex: Female

DRUGS (2)
  1. REVLIMID [Suspect]
     Active Substance: LENALIDOMIDE
     Indication: PRODUCT USED FOR UNKNOWN INDICATION
     Dosage: 315 MILLIGRAM (15 MILLIGRAM)
     Route: 065
     Dates: start: 20190918, end: 20191115
  2. DEXAMETHASONE. [Suspect]
     Active Substance: DEXAMETHASONE
     Indication: PRODUCT USED FOR UNKNOWN INDICATION
     Dosage: 560 MILLIGRAM (20 MILLIGRAM)
     Route: 065
     Dates: start: 20190918, end: 20191115

REACTIONS (2)
  - Infection [Unknown]
  - Death [Fatal]

NARRATIVE: CASE EVENT DATE: 20191008
